FAERS Safety Report 5115334-5 (Version None)
Quarter: 2006Q3

REPORT INFORMATION
  Report Type: 
  Country: None (occurrence: None)
  Receive Date: 20060922
  Receipt Date: 20060908
  Transmission Date: 20061208
  Serious: Yes (Death)
  Sender: FDA-Public Use
  Company Number: PHHO2006AU15210

PATIENT
  Age: 86 Year
  Sex: Female
  Weight: 46.9927 kg

DRUGS (2)
  1. LUCENTIS OR PLACEBO [Suspect]
     Indication: MACULAR DEGENERATION
     Dosage: 0.3 MG DAILY EY
  2. VISUDYNE [Suspect]
     Indication: MACULAR DEGENERATION

REACTIONS (1)
  - DEATH [None]
